FAERS Safety Report 16649812 (Version 3)
Quarter: 2019Q3

REPORT INFORMATION
  Report Type: Spontaneous
  Country: TW (occurrence: TW)
  Receive Date: 20190730
  Receipt Date: 20190820
  Transmission Date: 20191004
  Serious: Yes (Hospitalization)
  Sender: FDA-Public Use
  Company Number: TW-ABBVIE-19K-153-2867185-00

PATIENT
  Age: 79 Year
  Sex: Female

DRUGS (1)
  1. ADALIMUMAB [Suspect]
     Active Substance: ADALIMUMAB
     Indication: RHEUMATOID ARTHRITIS
     Route: 058
     Dates: start: 20151111, end: 20190710

REACTIONS (7)
  - Colitis ulcerative [Unknown]
  - Escherichia infection [Unknown]
  - Depressed level of consciousness [Recovered/Resolved]
  - Senile dementia [Recovered/Resolved]
  - Vascular occlusion [Unknown]
  - Urinary tract infection [Unknown]
  - Pneumonia klebsiella [Unknown]

NARRATIVE: CASE EVENT DATE: 20190724
